FAERS Safety Report 9620299 (Version 2)
Quarter: 2013Q4

REPORT INFORMATION
  Report Type: Spontaneous
  Country: US (occurrence: US)
  Receive Date: 20131014
  Receipt Date: 20131014
  Transmission Date: 20140711
  Serious: No
  Sender: FDA-Public Use
  Company Number: US-ALLERGAN-1301637US

PATIENT
  Age: 86 Year
  Sex: Female

DRUGS (1)
  1. ALPHAGAN P [Suspect]
     Indication: INTRAOCULAR PRESSURE INCREASED
     Dosage: 1 GTT, BID
     Route: 047
     Dates: start: 201301

REACTIONS (2)
  - Inappropriate schedule of drug administration [Unknown]
  - Ocular hyperaemia [Recovered/Resolved]
